FAERS Safety Report 9017397 (Version 1)
Quarter: 2013Q1

REPORT INFORMATION
  Report Type: Spontaneous
  Country: KP (occurrence: KP)
  Receive Date: 20130117
  Receipt Date: 20130117
  Transmission Date: 20140127
  Serious: Yes (Other)
  Sender: FDA-Public Use
  Company Number: KP-WATSON-2013-00182

PATIENT
  Sex: Female

DRUGS (2)
  1. CYCLOSPORINE (WATSON LABORATORIES) [Suspect]
     Indication: PROPHYLAXIS AGAINST GRAFT VERSUS HOST DISEASE
     Dosage: UNK, UNKNOWN
     Route: 065
  2. CYCLOPHOSPHAMIDE [Suspect]
     Indication: CHRONIC MYELOID LEUKAEMIA
     Dosage: 60 MG/KG, UNK
     Route: 065

REACTIONS (1)
  - Premature menopause [Unknown]
